FAERS Safety Report 11324342 (Version 1)
Quarter: 2015Q3

REPORT INFORMATION
  Report Type: Spontaneous
  Country: KR (occurrence: KR)
  Receive Date: 20150730
  Receipt Date: 20150730
  Transmission Date: 20151125
  Serious: Yes (Hospitalization)
  Sender: FDA-Public Use
  Company Number: KR-OTSUKA-US-2015-10048

PATIENT

DRUGS (31)
  1. AMIKIN [Concomitant]
     Active Substance: AMIKACIN SULFATE
     Indication: PYREXIA
     Dosage: 400 MG, 2 IN
     Route: 042
     Dates: start: 20141121, end: 20141124
  2. LANSTON [Concomitant]
     Active Substance: LANSOPRAZOLE
     Indication: ABDOMINAL PAIN UPPER
     Dosage: 30 MG, 1 IN
     Route: 048
     Dates: start: 20141123, end: 20141216
  3. LANSTON [Concomitant]
     Active Substance: LANSOPRAZOLE
     Dosage: 15 MG, 1 IN
     Route: 048
     Dates: start: 20150203, end: 20150215
  4. LANSTON [Concomitant]
     Active Substance: LANSOPRAZOLE
     Indication: ABDOMINAL PAIN UPPER
     Dosage: 30 MG, 1 IN
     Route: 048
     Dates: start: 20141123, end: 20141216
  5. LEVOTUSS [Concomitant]
     Active Substance: LEVODROPROPIZINE
     Indication: COUGH
     Dosage: 60 MG, 3 IN
     Route: 048
     Dates: start: 20141103, end: 20141120
  6. PYRIDOXINE [Concomitant]
     Active Substance: PYRIDOXINE
     Indication: ACUTE MYELOID LEUKAEMIA
     Dosage: 50 MG, 2 IN
     Route: 065
  7. SEROQUEL [Concomitant]
     Active Substance: QUETIAPINE FUMARATE
     Dosage: 25 MG, 1 IN
     Route: 048
     Dates: start: 20141129, end: 20141202
  8. SPORANOX [Concomitant]
     Active Substance: ITRACONAZOLE\SODIUM CHLORIDE
     Indication: ANTIFUNGAL PROPHYLAXIS
     Dosage: 10 ML, 2 IN
     Route: 048
  9. COMBICIN [Concomitant]
     Dosage: 3 G, 4 IN
     Route: 042
     Dates: start: 20141220, end: 20150102
  10. DACOGEN [Suspect]
     Active Substance: DECITABINE
     Indication: ACUTE MYELOID LEUKAEMIA
     Dosage: 20 MG/M2, 1 IN
     Route: 042
     Dates: start: 20141008, end: 20141015
  11. CITOPCIN [Concomitant]
     Indication: ANTIBIOTIC PROPHYLAXIS
     Dosage: 250 MG, 2 IN
     Route: 042
  12. ULCERMIN [Concomitant]
     Active Substance: SUCRALFATE
     Indication: ABDOMINAL PAIN UPPER
     Dosage: 15 ML, 4 IN
     Route: 065
     Dates: start: 20141122, end: 20141220
  13. K-CONTIN [Concomitant]
     Indication: HYPOKALAEMIA
     Dosage: 1200 MG, 3 IN
     Route: 065
     Dates: start: 20141122, end: 20141124
  14. DACOGEN [Suspect]
     Active Substance: DECITABINE
     Dosage: 20 MG/M2, 1 IN
     Route: 042
     Dates: start: 20150130, end: 20150203
  15. LEXAPRO [Concomitant]
     Active Substance: ESCITALOPRAM OXALATE
     Indication: DECREASED APPETITE
     Dosage: 5 MG, 1 IN
     Route: 048
     Dates: start: 20141231, end: 20150128
  16. METHYLCOBALAMIN [Concomitant]
     Active Substance: METHYLCOBALAMIN
     Indication: ACUTE MYELOID LEUKAEMIA
     Dosage: UNK, 2 IN
     Route: 065
  17. AMIKIN [Concomitant]
     Active Substance: AMIKACIN SULFATE
     Indication: BACTERAEMIA
     Dosage: 500 MG, 2 IN
     Route: 042
     Dates: start: 20141220, end: 20141222
  18. FOLIC ACID. [Concomitant]
     Active Substance: FOLIC ACID
     Indication: ACUTE MYELOID LEUKAEMIA
     Dosage: 1 MG, 1 IN
     Route: 065
  19. PANTOLOC [Concomitant]
     Active Substance: PANTOPRAZOLE SODIUM
     Dosage: 40 MG, UNK
     Route: 042
     Dates: start: 20141121, end: 20141122
  20. DACOGEN [Suspect]
     Active Substance: DECITABINE
     Dosage: 20 MG/M2, 1 IN
     Route: 042
     Dates: start: 20141230, end: 20150103
  21. MEGACE [Concomitant]
     Active Substance: MEGESTROL ACETATE
     Indication: DECREASED APPETITE
     Dosage: 40 MG, 2 IN
     Route: 048
     Dates: start: 20140731, end: 20150207
  22. MECCOL [Concomitant]
     Indication: ABDOMINAL PAIN UPPER
     Dosage: 10 MG, 3 IN
     Route: 042
     Dates: start: 20141217, end: 20150110
  23. SEROQUEL [Concomitant]
     Active Substance: QUETIAPINE FUMARATE
     Indication: DELIRIUM
     Dosage: 12.5 MG, 1 IN
     Route: 048
     Dates: start: 20141126, end: 20141128
  24. VITAMIN C [Concomitant]
     Active Substance: ASCORBIC ACID
     Indication: ACUTE MYELOID LEUKAEMIA
     Dosage: 1 G, 2 IN
     Route: 048
  25. DACOGEN [Suspect]
     Active Substance: DECITABINE
     Dosage: 20 MG/M2, 1 IN
     Route: 042
     Dates: start: 20141203, end: 20141207
  26. PANTOLOC [Concomitant]
     Active Substance: PANTOPRAZOLE SODIUM
     Indication: ABDOMINAL PAIN UPPER
     Dosage: 40 MG, UNK
     Route: 042
     Dates: start: 20141031, end: 20141122
  27. DACOGEN [Suspect]
     Active Substance: DECITABINE
     Dosage: 20 MG/M2, 1 IN
     Route: 042
     Dates: start: 20141105, end: 20141109
  28. DACOGEN [Suspect]
     Active Substance: DECITABINE
     Dosage: 20 MG/M2, 1 IN
     Route: 042
     Dates: start: 20150228, end: 20150304
  29. COMBICIN [Concomitant]
     Indication: BACTERAEMIA
     Dosage: 1.5 G, 4 IN
     Route: 042
     Dates: start: 20141121, end: 20141209
  30. NEXIUM [Concomitant]
     Active Substance: ESOMEPRAZOLE MAGNESIUM
     Indication: ABDOMINAL PAIN UPPER
     Dosage: 40 MG, 1 IN
     Route: 042
     Dates: start: 20141217, end: 20150110
  31. ZYPREXA [Concomitant]
     Active Substance: OLANZAPINE
     Indication: DECREASED APPETITE
     Dosage: 1.25 MG, 1 IN
     Route: 065
     Dates: start: 20150129, end: 20150203

REACTIONS (4)
  - Herpes simplex oesophagitis [Recovered/Resolved]
  - Drug eruption [Recovered/Resolved]
  - Oesophageal candidiasis [Recovered/Resolved]
  - Toxic skin eruption [Recovered/Resolved]

NARRATIVE: CASE EVENT DATE: 20141030
